FAERS Safety Report 8723599 (Version 2)
Quarter: 2012Q4

REPORT INFORMATION
  Report Type: 
  Country: FR (occurrence: FR)
  Receive Date: 20120814
  Receipt Date: 20120912
  Transmission Date: 20130627
  Serious: Yes (Hospitalization)
  Sender: FDA-Public Use
  Company Number: PHHY2012FR068930

PATIENT
  Age: 50 Year
  Sex: Male

DRUGS (4)
  1. LEVOFLOXACIN [Suspect]
     Indication: HELICOBACTER GASTRITIS
     Dosage: 500 mg, BID
     Route: 048
     Dates: start: 20120629, end: 20120709
  2. ESOMEPRAZOLE [Suspect]
     Dosage: 40 mg, BID
     Route: 048
     Dates: start: 20120629, end: 20120709
  3. BISMUTH SUBSALICYLATE [Suspect]
     Indication: HELICOBACTER GASTRITIS
     Dosage: 600 mg, QID
     Route: 048
     Dates: start: 20120629, end: 20120709
  4. RIFABUTIN [Suspect]
     Indication: HELICOBACTER GASTRITIS
     Dosage: 150 mg, BID
     Dates: start: 20120629, end: 20120709

REACTIONS (1)
  - Tendon rupture [Not Recovered/Not Resolved]
